FAERS Safety Report 23500583 (Version 1)
Quarter: 2024Q1

REPORT INFORMATION
  Report Type: Spontaneous
  Country: US (occurrence: US)
  Receive Date: 20240208
  Receipt Date: 20240208
  Transmission Date: 20240409
  Serious: No
  Sender: FDA-Public Use
  Company Number: US-BAYER-2024A012994

PATIENT
  Age: 38 Year
  Sex: Male

DRUGS (1)
  1. JIVI [Suspect]
     Active Substance: DAMOCTOCOG ALFA PEGOL
     Dosage: 6000 IU; INFUSION; PRN

REACTIONS (2)
  - Back pain [None]
  - Inflammation [None]

NARRATIVE: CASE EVENT DATE: 20240117
